FAERS Safety Report 14422878 (Version 1)
Quarter: 2018Q1

REPORT INFORMATION
  Report Type: Spontaneous
  Country: US (occurrence: US)
  Receive Date: 20180123
  Receipt Date: 20180123
  Transmission Date: 20180509
  Serious: No
  Sender: FDA-Public Use
  Company Number: US-ENDO PHARMACEUTICALS INC-2017-004283

PATIENT
  Sex: Female
  Weight: 49.9 kg

DRUGS (2)
  1. PERCOCET [Suspect]
     Active Substance: ACETAMINOPHEN\OXYCODONE HYDROCHLORIDE
     Indication: PRODUCT USED FOR UNKNOWN INDICATION
     Dosage: UNK UNK, UNKNOWN
     Route: 065
     Dates: start: 201701, end: 201703
  2. LYRICA [Concomitant]
     Active Substance: PREGABALIN
     Indication: NEUROPATHY PERIPHERAL

REACTIONS (2)
  - Irritable bowel syndrome [Unknown]
  - Constipation [Recovered/Resolved]

NARRATIVE: CASE EVENT DATE: 2017
